FAERS Safety Report 20822632 (Version 2)
Quarter: 2022Q3

REPORT INFORMATION
  Report Type: Report from Study
  Country: US (occurrence: US)
  Receive Date: 20220512
  Receipt Date: 20220714
  Transmission Date: 20221027
  Serious: Yes (Other)
  Sender: FDA-Public Use
  Company Number: US-BIOGEN-2022BI01121670

PATIENT
  Sex: Female
  Weight: 53.07 kg

DRUGS (16)
  1. TYSABRI [Suspect]
     Active Substance: NATALIZUMAB
     Indication: Multiple sclerosis
     Dosage: INFUSED OVER 1 HOUR
     Route: 050
     Dates: start: 20191122
  2. TYSABRI [Suspect]
     Active Substance: NATALIZUMAB
     Route: 050
  3. ALBUTEROL SULFATE [Concomitant]
     Active Substance: ALBUTEROL SULFATE
     Indication: Product used for unknown indication
     Dosage: 2.5 MILLIGRAMS/3 MILLILITERS (0.083 %) AS NEEDED
     Route: 050
  4. BUSPIRONE HCL [Concomitant]
     Active Substance: BUSPIRONE HYDROCHLORIDE
     Indication: Product used for unknown indication
     Dosage: 1 TABLET AS NEEDED TWICE A DAY
     Route: 050
  5. CLARITIN [Concomitant]
     Active Substance: LORATADINE
     Indication: Product used for unknown indication
     Dosage: AS NEEDED (ALTERNATES WITH ZYRTEC)
     Route: 050
  6. ALUMINUM CHLORIDE [Concomitant]
     Active Substance: ALUMINUM CHLORIDE
     Indication: Product used for unknown indication
     Dosage: 20% SOLUTION 1 APPLICATION TO AFFECTED AREA AT BEDTIME EXTERNALLY DAILY
     Route: 050
  7. FISH OIL [Concomitant]
     Active Substance: FISH OIL
     Indication: Product used for unknown indication
     Route: 050
  8. FLONASE [Concomitant]
     Active Substance: FLUTICASONE PROPIONATE
     Indication: Product used for unknown indication
     Dosage: 50 MCG/ACT SUSPENSION 1 SPRAY IN EACH NOSTRIL NASALLY ONCE A DAY
     Route: 050
  9. MIRENA [Concomitant]
     Active Substance: LEVONORGESTREL
     Indication: Product used for unknown indication
     Route: 050
  10. SINGULAIR [Concomitant]
     Active Substance: MONTELUKAST SODIUM
     Indication: Product used for unknown indication
     Route: 050
  11. SYSTANE (HYPROMELLOSE 2910 (4000 MPA.S)) [Concomitant]
     Active Substance: HYPROMELLOSE 2910 (4000 MPA.S)
     Indication: Product used for unknown indication
     Dosage: 0.4 - 0.3 % 2 DROPS IN EACH EYE AT BEDTIME
     Route: 050
  12. TRIAMCINOLONE ACETONIDE [Concomitant]
     Active Substance: TRIAMCINOLONE ACETONIDE
     Indication: Product used for unknown indication
     Dosage: 0.5 % 1 APPLICATION TO AFFECTED AREA, EXTERNALLY AS NEEDED
     Route: 050
  13. VENTOLIN HFA [Concomitant]
     Active Substance: ALBUTEROL SULFATE
     Indication: Product used for unknown indication
     Dosage: 108 (90 BASE) MCG/ACT 2 PUFFS AS NEEDED INHALATION EVERY 6 HOURS
     Route: 050
  14. VITAMIN D3 [Concomitant]
     Active Substance: CHOLECALCIFEROL
     Indication: Product used for unknown indication
     Route: 050
  15. ZYRTEC [Concomitant]
     Active Substance: CETIRIZINE HYDROCHLORIDE
     Indication: Product used for unknown indication
     Dosage: 1 TABLET AS NEEDED (ALTERNATES WITH CLARITIN)
     Route: 050
  16. VITAMIN D [Concomitant]
     Active Substance: VITAMIN D NOS
     Indication: Product used for unknown indication
     Route: 050

REACTIONS (1)
  - Myelitis transverse [Unknown]
